FAERS Safety Report 8305154-2 (Version None)
Quarter: 2012Q2

REPORT INFORMATION
  Report Type: 
  Country: None (occurrence: None)
  Receive Date: 20120423
  Receipt Date: 20120414
  Transmission Date: 20120825
  Serious: Yes (Hospitalization)
  Sender: FDA-Public Use
  Company Number: BR-ASTRAZENECA-2012SE24849

PATIENT
  Age: 61 Year
  Sex: Female
  Weight: 67 kg

DRUGS (2)
  1. NEXIUM [Suspect]
     Indication: AEROPHAGIA
     Route: 048
     Dates: start: 20100101, end: 20120401
  2. NEXIUM [Suspect]
     Route: 048

REACTIONS (2)
  - OFF LABEL USE [None]
  - BREAST MASS [None]
